FAERS Safety Report 9795495 (Version 2)
Quarter: 2014Q1

REPORT INFORMATION
  Report Type: Report from Study
  Country: CA (occurrence: CA)
  Receive Date: 20140103
  Receipt Date: 20140103
  Transmission Date: 20141002
  Serious: Yes (Other)
  Sender: FDA-Public Use
  Company Number: CA-JNJFOC-20131208943

PATIENT
  Age: 63 Year
  Sex: Female
  Weight: 58.97 kg

DRUGS (5)
  1. REMICADE [Suspect]
     Indication: CROHN^S DISEASE
     Route: 042
     Dates: start: 201007
  2. REMICADE [Suspect]
     Indication: CROHN^S DISEASE
     Route: 042
     Dates: start: 2011
  3. AMLODIPINE [Concomitant]
     Route: 065
  4. IMURAN [Concomitant]
     Route: 065
  5. VITAMIN [Concomitant]
     Route: 065

REACTIONS (3)
  - Cataract [Unknown]
  - Parkinson^s disease [Not Recovered/Not Resolved]
  - Local swelling [Not Recovered/Not Resolved]
